FAERS Safety Report 11135713 (Version 2)
Quarter: 2016Q2

REPORT INFORMATION
  Report Type: Report from Study
  Country: US (occurrence: US)
  Receive Date: 20150526
  Receipt Date: 20160516
  Transmission Date: 20160815
  Serious: No
  Sender: FDA-Public Use
  Company Number: US-MALLINCKRODT-T201501968

PATIENT
  Sex: Female

DRUGS (1)
  1. REPOSITORY CORTICOTROPIN INJECTION [Suspect]
     Active Substance: CORTICOTROPIN
     Indication: IGA NEPHROPATHY
     Dosage: 40 U, 2X/WK
     Route: 065
     Dates: start: 20141129

REACTIONS (2)
  - Abdominal pain [Recovered/Resolved]
  - Contusion [Unknown]
